FAERS Safety Report 9123004 (Version 1)
Quarter: 2013Q1

REPORT INFORMATION
  Report Type: Spontaneous
  Country: US (occurrence: US)
  Receive Date: 20130115
  Receipt Date: 20130115
  Transmission Date: 20140127
  Serious: Yes (Other)
  Sender: FDA-Public Use
  Company Number: US-009507513-1301USA003438

PATIENT
  Age: 13 Year
  Sex: Female

DRUGS (4)
  1. SINGULAIR [Suspect]
     Indication: DERMATITIS ATOPIC
     Dosage: 10 MG, QD
     Route: 048
  2. CLARITIN REDITABS [Suspect]
     Dosage: 10 MG, UNK
     Route: 048
  3. SAIBOKU [Suspect]
     Indication: ASTHMA
     Dosage: 10 G, UNK
     Route: 048
  4. EPINASTINE HYDROCHLORIDE [Suspect]
     Dosage: 20 MG, QD
     Route: 048

REACTIONS (2)
  - Drug hypersensitivity [Unknown]
  - Allergic cystitis [Unknown]
